FAERS Safety Report 8420361-6 (Version None)
Quarter: 2012Q2

REPORT INFORMATION
  Report Type: 
  Country: None (occurrence: None)
  Receive Date: 20120607
  Receipt Date: 20120525
  Transmission Date: 20120825
  Serious: Yes (Hospitalization)
  Sender: FDA-Public Use
  Company Number: FR-TEVA-341607ISR

PATIENT
  Sex: Female

DRUGS (13)
  1. VITAMIN D [Concomitant]
     Dosage: 3333.3333 IU (INTERNATIONAL UNIT);
     Route: 048
  2. OROCAL VIT D3 [Concomitant]
     Dosage: 1 DOSAGE FORMS; 500MG/200 UI
     Route: 048
  3. ACETAMINOPHEN [Concomitant]
  4. MORPHINE SULFATE [Concomitant]
     Dosage: 6 DOSAGE FORMS;
     Route: 048
  5. XANAX [Concomitant]
     Dosage: 2 DOSAGE FORMS;
     Route: 048
  6. METHYLPREDNISOLONE [Concomitant]
     Dosage: 4 DOSAGE FORMS;
     Route: 048
  7. CARBOPLATIN [Suspect]
     Indication: NON-SMALL CELL LUNG CANCER STAGE IV
     Dosage: 637 MILLIGRAM; 1 SINGLE DOSE
     Route: 042
     Dates: start: 20120203
  8. TRAMADOL HCL [Concomitant]
     Route: 048
  9. MORPHINE SULFATE [Concomitant]
     Dosage: 40 MILLIGRAM;
     Route: 048
  10. ALDACTONE [Concomitant]
     Dosage: 1 DOSAGE FORMS;
     Route: 048
  11. PACLITAXEL [Suspect]
     Indication: NON-SMALL CELL LUNG CANCER STAGE IV
     Dosage: 1 COURSE
     Route: 042
     Dates: start: 20120203, end: 20120210
  12. ZOMETA [Concomitant]
     Dosage: 1 DOSAGE FORMS; 1 SINGLE DOSE
     Route: 042
     Dates: start: 20120203
  13. PRIMPERAN TAB [Concomitant]
     Dosage: 3 DOSAGE FORMS;
     Route: 048

REACTIONS (1)
  - PSEUDOMEMBRANOUS COLITIS [None]
